FAERS Safety Report 15708834 (Version 1)
Quarter: 2018Q4

REPORT INFORMATION
  Report Type: Spontaneous
  Country: US (occurrence: US)
  Receive Date: 20181211
  Receipt Date: 20181211
  Transmission Date: 20190205
  Serious: Yes (Hospitalization)
  Sender: FDA-Public Use
  Company Number: US-ALKERMES INC.-ALK-2018-006796

PATIENT
  Age: 42 Year
  Sex: Female

DRUGS (1)
  1. VIVITROL [Suspect]
     Active Substance: NALTREXONE
     Indication: DRUG DEPENDENCE
     Dosage: 380 MG, QMO
     Route: 030

REACTIONS (5)
  - Somnolence [Recovering/Resolving]
  - Inadequate analgesia [Recovering/Resolving]
  - Appendicectomy [Recovering/Resolving]
  - Abdominal pain [Recovering/Resolving]
  - Product prescribing error [Recovered/Resolved]
